FAERS Safety Report 7678846-6 (Version None)
Quarter: 2011Q3

REPORT INFORMATION
  Report Type: 
  Country: None (occurrence: None)
  Receive Date: 20110812
  Receipt Date: 20110804
  Transmission Date: 20111222
  Serious: Yes (Hospitalization, Other)
  Sender: FDA-Public Use
  Company Number: PHHY2010JP36116

PATIENT
  Age: 61 Year
  Sex: Female

DRUGS (2)
  1. ZOMETA [Suspect]
     Indication: METASTASES TO BONE
     Dosage: 4 MG, (PER ADMINISTRATION)
     Route: 041
     Dates: start: 20070101
  2. ZOMETA [Suspect]
     Dosage: 4 MG, (PER ADMINISTRATION)
     Route: 041
     Dates: start: 20080301

REACTIONS (5)
  - OSTEONECROSIS OF JAW [None]
  - SWELLING FACE [None]
  - GAS GANGRENE [None]
  - TRISMUS [None]
  - TOOTH INFECTION [None]
